FAERS Safety Report 6130383-6 (Version None)
Quarter: 2009Q1

REPORT INFORMATION
  Report Type: 
  Country: None (occurrence: None)
  Receive Date: 20090324
  Receipt Date: 20090319
  Transmission Date: 20090719
  Serious: No
  Sender: FDA-Public Use
  Company Number: US-B.I. PHARMACEUTICALS,INC./RIDGEFIELD-2008-BP-12687BP

PATIENT
  Age: 80 Year
  Sex: Female
  Weight: 61 kg

DRUGS (3)
  1. COMBIVENT [Suspect]
     Indication: CHRONIC OBSTRUCTIVE PULMONARY DISEASE
     Dosage: 6PUF
     Route: 055
     Dates: start: 20050101
  2. SINGULAIR [Concomitant]
     Dosage: 10MG
     Dates: start: 20070101
  3. LEVOXYL [Concomitant]
     Dosage: 8MG
     Dates: start: 20040101

REACTIONS (5)
  - DENTAL CARIES [None]
  - DRY MOUTH [None]
  - ENAMEL ANOMALY [None]
  - ORAL PAIN [None]
  - TOOTH LOSS [None]
